FAERS Safety Report 15900206 (Version 1)
Quarter: 2019Q1

REPORT INFORMATION
  Report Type: Spontaneous
  Country: US (occurrence: US)
  Receive Date: 20190201
  Receipt Date: 20190201
  Transmission Date: 20190417
  Serious: No
  Sender: FDA-Public Use
  Company Number: US-ALKERMES INC.-ALK-2019-000432

PATIENT

DRUGS (2)
  1. VIVITROL [Suspect]
     Active Substance: NALTREXONE
     Indication: DRUG USE DISORDER
     Dosage: 380 MG, QMO
     Route: 030
  2. NALTREXONE [Concomitant]
     Active Substance: NALTREXONE
     Indication: DRUG USE DISORDER
     Dosage: 200 MG, UNK
     Route: 048

REACTIONS (1)
  - Off label use [Unknown]
